FAERS Safety Report 15573642 (Version 1)
Quarter: 2018Q4

REPORT INFORMATION
  Report Type: Spontaneous
  Country: ES (occurrence: ES)
  Receive Date: 20181101
  Receipt Date: 20181101
  Transmission Date: 20190205
  Serious: Yes (Other)
  Sender: FDA-Public Use
  Company Number: ES-TEVA-2018-ES-970373

PATIENT
  Age: 66 Year
  Sex: Male

DRUGS (7)
  1. ACENOCUMAROL (220A) [Interacting]
     Active Substance: ACENOCOUMAROL
     Route: 048
     Dates: start: 20140407, end: 20180530
  2. MICOFENOLATO DE MOFETILO (7330LM) [Concomitant]
     Active Substance: MYCOPHENOLATE MOFETIL
     Dosage: 1-0-1
     Route: 048
  3. CICLOSPORINA (406A) [Concomitant]
     Active Substance: CYCLOSPORINE
     Dosage: 1-0-1
     Route: 048
  4. PANTOPRAZOL (7275A) [Concomitant]
     Active Substance: PANTOPRAZOLE
     Dosage: 0-0-1
     Route: 048
  5. PREDNISONA (886A) [Concomitant]
     Active Substance: PREDNISONE
     Dosage: 0-0-1
     Route: 048
  6. AMOXICILLIN. [Suspect]
     Active Substance: AMOXICILLIN
     Indication: RESPIRATORY TRACT INFECTION
     Route: 048
     Dates: start: 20180522, end: 20180527
  7. ENALAPRIL (2142A) [Concomitant]
     Active Substance: ENALAPRIL
     Dosage: 0-0-1
     Route: 048

REACTIONS (2)
  - Haemoptysis [Recovered/Resolved]
  - Drug interaction [Unknown]

NARRATIVE: CASE EVENT DATE: 20180530
